FAERS Safety Report 24357257 (Version 1)
Quarter: 2024Q3

REPORT INFORMATION
  Report Type: Spontaneous
  Country: IT (occurrence: IT)
  Receive Date: 20240924
  Receipt Date: 20240924
  Transmission Date: 20241017
  Serious: Yes (Hospitalization, Other)
  Sender: HIKMA
  Company Number: IT-MLMSERVICE-20240906-PI186741-00128-1

PATIENT
  Age: 71 Year
  Sex: Male

DRUGS (5)
  1. ADCETRIS [Suspect]
     Active Substance: BRENTUXIMAB VEDOTIN
     Indication: Hodgkin^s disease nodular sclerosis stage IV
     Dosage: 1.8 MILLIGRAM/KILOGRAM, REDUCED TO 0.9 MILLIGRAM PER KILOGRAM ON DAY 1 AND DAY 15 OF EACH CYCLE OF 2
     Route: 065
     Dates: start: 2022, end: 202211
  2. ADCETRIS [Suspect]
     Active Substance: BRENTUXIMAB VEDOTIN
     Dosage: 2.4 MILLIGRAM/KILOGRAM, 1.2 MILLIGRAM PER KILOGRAM ON DAY 1 AND DAY 15 OF EACH CYCLE OF 28 DAYS, 2 C
     Route: 065
     Dates: start: 202205, end: 2022
  3. DACARBAZINE [Suspect]
     Active Substance: DACARBAZINE
     Indication: Hodgkin^s disease nodular sclerosis stage IV
     Dosage: 375 MG/SQUARE METER, ON DAY 1 AND DAY 15 OF EACH CYCLE OF 28 DAYS, FOR 6 CYCLES IN TOTAL
     Route: 065
     Dates: start: 202205
  4. DOXORUBICIN [Suspect]
     Active Substance: DOXORUBICIN
     Indication: Hodgkin^s disease nodular sclerosis stage IV
     Dosage: 25 MG/SQUARE METER, ON DAY 1 AND DAY 15 OF EACH CYCLE OF 28 DAYS, FOR 6 CYCLES IN TOTAL
     Route: 065
     Dates: start: 202205
  5. VINBLASTINE [Suspect]
     Active Substance: VINBLASTINE
     Indication: Hodgkin^s disease nodular sclerosis stage IV
     Dosage: 6 MG/SQUARE METER, ON DAY 1 AND DAY 15 OF EACH CYCLE OF 28 DAYS, FOR 6 CYCLES IN TOTAL
     Route: 065
     Dates: start: 202205

REACTIONS (6)
  - Neuropathy peripheral [Recovering/Resolving]
  - Posterior reversible encephalopathy syndrome [Recovered/Resolved]
  - Dysphonia [Recovered/Resolved]
  - Mucosal inflammation [Unknown]
  - Febrile neutropenia [Unknown]
  - Dizziness [Recovering/Resolving]

NARRATIVE: CASE EVENT DATE: 20220101
